FAERS Safety Report 13735791 (Version 1)
Quarter: 2017Q3

REPORT INFORMATION
  Report Type: Spontaneous
  Country: GB (occurrence: GB)
  Receive Date: 20170710
  Receipt Date: 20170710
  Transmission Date: 20171127
  Serious: Yes (Other)
  Sender: FDA-Public Use
  Company Number: GB-CONCORDIA PHARMACEUTICALS INC.-E2B_00007707

PATIENT
  Age: 47 Year
  Sex: Male

DRUGS (11)
  1. RITUXIMAB. [Concomitant]
     Active Substance: RITUXIMAB
     Indication: DERMATITIS ATOPIC
     Dates: start: 201208
  2. RITUXIMAB. [Concomitant]
     Active Substance: RITUXIMAB
     Dosage: GIVEN 2 WEEKS APART
     Dates: start: 201305
  3. MYCOPHENOLATE MOFETIL. [Concomitant]
     Active Substance: MYCOPHENOLATE MOFETIL
     Indication: DERMATITIS ATOPIC
  4. TACROLIMUS. [Concomitant]
     Active Substance: TACROLIMUS
     Indication: DERMATITIS ATOPIC
  5. CICLOSPORIN [Suspect]
     Active Substance: CYCLOSPORINE
     Indication: DERMATITIS ATOPIC
  6. FUMARIC ACID [Concomitant]
     Active Substance: FUMARIC ACID
     Indication: DERMATITIS ATOPIC
     Dosage: FUMARIC ACID ESTERS
  7. PREDNISOLONE. [Suspect]
     Active Substance: PREDNISOLONE
     Indication: DERMATITIS ATOPIC
     Dosage: 20-25 MG
  8. METHOTREXATE. [Suspect]
     Active Substance: METHOTREXATE
  9. AZATHIOPRINE. [Suspect]
     Active Substance: AZATHIOPRINE
  10. PREDNISOLONE. [Suspect]
     Active Substance: PREDNISOLONE
  11. PREDNISOLONE. [Suspect]
     Active Substance: PREDNISOLONE

REACTIONS (2)
  - Cushingoid [Unknown]
  - Skin infection [Unknown]
